FAERS Safety Report 4898144-3 (Version None)
Quarter: 2006Q1

REPORT INFORMATION
  Report Type: 
  Country: None (occurrence: None)
  Receive Date: 20060130
  Receipt Date: 20060124
  Transmission Date: 20060701
  Serious: Yes (Life-Threatening, Hospitalization)
  Sender: FDA-Public Use
  Company Number: 221243

PATIENT
  Age: 58 Year
  Sex: Female
  Weight: 69.4 kg

DRUGS (6)
  1. XOLAIR [Suspect]
     Indication: DRUG USE FOR UNKNOWN INDICATION
     Dosage: 375 MG, Q2W, SUBCUTANEOUS
     Route: 058
     Dates: start: 20051111, end: 20060103
  2. FORADIL [Concomitant]
  3. SINGULAIR [Concomitant]
  4. THEO-DUR [Concomitant]
  5. ALBUTEROL (ALBUTEROL/ALBUTEROL SULFATE) [Concomitant]
  6. TEGISON [Concomitant]

REACTIONS (3)
  - ASTHMA [None]
  - BRONCHITIS ACUTE [None]
  - CONDITION AGGRAVATED [None]
